FAERS Safety Report 18577702 (Version 1)
Quarter: 2020Q4

REPORT INFORMATION
  Report Type: Report from Study
  Country: None (occurrence: US)
  Receive Date: 20201203
  Receipt Date: 20201203
  Transmission Date: 20210114
  Serious: Yes (Hospitalization, Other)
  Sender: FDA-Public Use
  Company Number: US-ABBVIE-20K-163-3585641-00

PATIENT
  Age: 53 Year
  Sex: Female
  Weight: 101.24 kg

DRUGS (2)
  1. HUMIRA [Suspect]
     Active Substance: ADALIMUMAB
     Indication: ANKYLOSING SPONDYLITIS
     Route: 058
     Dates: start: 201704, end: 202009
  2. HUMIRA [Suspect]
     Active Substance: ADALIMUMAB
     Route: 058
     Dates: start: 20201023

REACTIONS (9)
  - Gastric infection [Recovered/Resolved]
  - Upper limb fracture [Recovered/Resolved]
  - Arthralgia [Unknown]
  - Rotator cuff repair [Recovering/Resolving]
  - Shoulder operation [Recovered/Resolved]
  - Fracture [Recovered/Resolved]
  - Arthropathy [Unknown]
  - Limb injury [Unknown]
  - Rotator cuff syndrome [Unknown]

NARRATIVE: CASE EVENT DATE: 201809
